FAERS Safety Report 13681769 (Version 1)
Quarter: 2017Q2

REPORT INFORMATION
  Report Type: Report from Study
  Country: GB (occurrence: GB)
  Receive Date: 20170623
  Receipt Date: 20170623
  Transmission Date: 20170830
  Serious: Yes (Hospitalization)
  Sender: FDA-Public Use
  Company Number: PHFR2017GB004537

PATIENT
  Age: 62 Year
  Sex: Female

DRUGS (4)
  1. LOPERAMIDE [Concomitant]
     Active Substance: LOPERAMIDE
     Indication: PRODUCT USED FOR UNKNOWN INDICATION
  2. SANDOSTATIN LAR DEPOT [Suspect]
     Active Substance: OCTREOTIDE ACETATE
     Indication: NEUROENDOCRINE TUMOUR
     Dosage: 30 MG, UNK
     Route: 065
     Dates: start: 201702
  3. FRUSEMIDE [Concomitant]
     Active Substance: FUROSEMIDE
     Indication: PRODUCT USED FOR UNKNOWN INDICATION
     Dosage: 40 MG, QD
     Route: 065
  4. FLUOXETIN [Concomitant]
     Active Substance: FLUOXETINE HYDROCHLORIDE
     Indication: PRODUCT USED FOR UNKNOWN INDICATION
     Dosage: 40 MG, QD
     Route: 065

REACTIONS (11)
  - Ovarian disorder [Unknown]
  - Metastases to abdominal cavity [Unknown]
  - Metastases to ovary [Unknown]
  - Urinary tract infection [Unknown]
  - Malignant neoplasm progression [Unknown]
  - Laceration [Unknown]
  - Metastases to liver [Unknown]
  - Blood potassium decreased [Unknown]
  - Fall [Unknown]
  - Pleural effusion [Unknown]
  - Vomiting [Unknown]

NARRATIVE: CASE EVENT DATE: 20170602
